FAERS Safety Report 11718168 (Version 1)
Quarter: 2015Q4

REPORT INFORMATION
  Report Type: Spontaneous
  Country: US (occurrence: None)
  Receive Date: 20151109
  Receipt Date: 20151109
  Transmission Date: 20160304
  Serious: Yes (Hospitalization)
  Sender: FDA-Public Use
  Company Number: None

PATIENT
  Age: 83 Year
  Sex: Male
  Weight: 98.2 kg

DRUGS (2)
  1. RIVAROXABAN [Suspect]
     Active Substance: RIVAROXABAN
     Indication: ATRIAL FIBRILLATION
     Route: 048
     Dates: start: 20150701, end: 20150711
  2. CLOPIDOGREL [Concomitant]
     Active Substance: CLOPIDOGREL BISULFATE
     Indication: CORONARY ARTERIAL STENT INSERTION
     Route: 048
     Dates: start: 20140718, end: 20150711

REACTIONS (7)
  - Gastrointestinal haemorrhage [None]
  - Treatment noncompliance [None]
  - Melaena [None]
  - Haematemesis [None]
  - Chest pain [None]
  - Faeces discoloured [None]
  - Incorrect drug administration duration [None]

NARRATIVE: CASE EVENT DATE: 20150710
